FAERS Safety Report 15704480 (Version 2)
Quarter: 2018Q4

REPORT INFORMATION
  Report Type: Report from Study
  Country: None (occurrence: CH)
  Receive Date: 20181210
  Receipt Date: 20181211
  Transmission Date: 20190205
  Serious: Yes (Other)
  Sender: FDA-Public Use
  Company Number: CH-ABBVIE-18S-151-2583942-00

PATIENT
  Sex: Male

DRUGS (2)
  1. DUODOPA [Suspect]
     Active Substance: CARBIDOPA\LEVODOPA
     Dosage: MD 8ML; CONTINUOUS RATE-DAY 4.3ML/H; CONTINUOUS RATE-NIGHT 2.9ML/H; ED 1.3ML , 24H THERAPY
     Route: 050
     Dates: start: 20170622
  2. DUODOPA [Suspect]
     Active Substance: CARBIDOPA\LEVODOPA
     Indication: PARKINSON^S DISEASE
     Route: 050
     Dates: start: 20091207, end: 20170622

REACTIONS (5)
  - Dyskinesia [Unknown]
  - Loss of consciousness [Unknown]
  - Device leakage [Unknown]
  - Orthostatic intolerance [Not Recovered/Not Resolved]
  - Mental impairment [Unknown]
